FAERS Safety Report 12923750 (Version 1)
Quarter: 2016Q4

REPORT INFORMATION
  Report Type: Spontaneous
  Country: US (occurrence: US)
  Receive Date: 20161109
  Receipt Date: 20161109
  Transmission Date: 20170207
  Serious: No
  Sender: FDA-Public Use
  Company Number: None

PATIENT
  Age: 60 Year
  Sex: Female
  Weight: 69.01 kg

DRUGS (8)
  1. ATORVASTATIN CALCIUM. [Concomitant]
     Active Substance: ATORVASTATIN CALCIUM
  2. LOW DOSE ASPIRIN [Concomitant]
     Active Substance: ASPIRIN
  3. LISINOPRIL. [Suspect]
     Active Substance: LISINOPRIL
  4. PACEMAKER [Concomitant]
  5. NEXIUM [Concomitant]
     Active Substance: ESOMEPRAZOLE MAGNESIUM
  6. CARVEDILOL. [Concomitant]
     Active Substance: CARVEDILOL
  7. MORTIN [Concomitant]
     Active Substance: SULFAMETHOXAZOLE\TRIMETHOPRIM
  8. ANTIACE [Concomitant]

REACTIONS (4)
  - Cyanopsia [None]
  - Visual acuity reduced [None]
  - Rash generalised [None]
  - Dizziness postural [None]

NARRATIVE: CASE EVENT DATE: 200708
